FAERS Safety Report 16172764 (Version 1)
Quarter: 2019Q2

REPORT INFORMATION
  Report Type: Spontaneous
  Country: DM (occurrence: DM)
  Receive Date: 20190409
  Receipt Date: 20190409
  Transmission Date: 20190711
  Serious: Yes (Other)
  Sender: FDA-Public Use
  Company Number: DM-MACLEODS PHARMACEUTICALS US LTD-MAC2019020814

PATIENT

DRUGS (2)
  1. QUETIAPINE. [Suspect]
     Active Substance: QUETIAPINE
     Indication: MAJOR DEPRESSION
  2. QUETIAPINE. [Suspect]
     Active Substance: QUETIAPINE
     Indication: GENERALISED ANXIETY DISORDER
     Dosage: 25 MG TO 300 MG A DAY, QD
     Route: 065

REACTIONS (2)
  - Restless legs syndrome [Recovered/Resolved]
  - Poor quality sleep [Recovered/Resolved]
